FAERS Safety Report 18168665 (Version 1)
Quarter: 2020Q3

REPORT INFORMATION
  Report Type: Spontaneous
  Country: ES (occurrence: ES)
  Receive Date: 20200819
  Receipt Date: 20200819
  Transmission Date: 20201103
  Serious: Yes (Hospitalization, Other)
  Sender: FDA-Public Use
  Company Number: ES-MACLEODS PHARMACEUTICALS US LTD-MAC2020027659

PATIENT

DRUGS (2)
  1. DULOXETINE 30 MG [Suspect]
     Active Substance: DULOXETINE
     Indication: SUICIDE ATTEMPT
     Dosage: UNK UNK, SINGLE, 3 BOXEX OF DULOXETINE
     Route: 065
  2. LORAZEPAM. [Concomitant]
     Active Substance: LORAZEPAM
     Indication: DEPRESSION
     Dosage: UNK
     Route: 065

REACTIONS (10)
  - Mydriasis [Recovered/Resolved]
  - Toxicity to various agents [Recovered/Resolved]
  - Hallucination, visual [Recovered/Resolved]
  - Drug level increased [Recovered/Resolved]
  - Delusion [Recovered/Resolved]
  - Serotonin syndrome [Recovered/Resolved]
  - Opsoclonus myoclonus [Recovered/Resolved]
  - Leukocytosis [Recovered/Resolved]
  - Intentional overdose [Recovered/Resolved]
  - Tachycardia [Recovered/Resolved]
